FAERS Safety Report 14484470 (Version 1)
Quarter: 2018Q1

REPORT INFORMATION
  Report Type: Spontaneous
  Country: FR (occurrence: FR)
  Receive Date: 20180205
  Receipt Date: 20180205
  Transmission Date: 20180509
  Serious: Yes (Life-Threatening, Hospitalization)
  Sender: FDA-Public Use
  Company Number: FR-SUN PHARMACEUTICAL INDUSTRIES LTD-2018RR-162460

PATIENT
  Age: 82 Year
  Sex: Male
  Weight: 71 kg

DRUGS (6)
  1. PANTOPRAZOLE [Concomitant]
     Active Substance: PANTOPRAZOLE
     Indication: PRODUCT USED FOR UNKNOWN INDICATION
     Route: 048
  2. PARACETAMOL [Suspect]
     Active Substance: ACETAMINOPHEN
     Indication: SUICIDE ATTEMPT
     Dosage: 5000 MG, UNK
     Route: 048
     Dates: start: 20171120, end: 20171120
  3. SERESTA 10 MG, COMPRIME [Suspect]
     Active Substance: OXAZEPAM
     Indication: SUICIDE ATTEMPT
     Dosage: IN TOTAL
     Route: 048
     Dates: start: 20171120, end: 20171120
  4. CARDENSIEL 1,25 MG, COMPRIME PELLICULE [Concomitant]
     Indication: PRODUCT USED FOR UNKNOWN INDICATION
     Route: 048
  5. FOLIQUE (ACIDE) [Concomitant]
     Indication: PRODUCT USED FOR UNKNOWN INDICATION
     Route: 048
  6. SEROPLEX 10 MG, COMPRIME PELLICULE SECABLE [Concomitant]
     Indication: PRODUCT USED FOR UNKNOWN INDICATION
     Route: 048

REACTIONS (1)
  - Coma [Recovered/Resolved]

NARRATIVE: CASE EVENT DATE: 20171120
